FAERS Safety Report 10332118 (Version 1)
Quarter: 2014Q3

REPORT INFORMATION
  Report Type: Spontaneous
  Country: SE (occurrence: SE)
  Receive Date: 20140722
  Receipt Date: 20140722
  Transmission Date: 20150326
  Serious: Yes (Hospitalization)
  Sender: FDA-Public Use
  Company Number: SE-BRISTOL-MYERS SQUIBB COMPANY-21199096

PATIENT
  Age: 89 Year
  Sex: Female

DRUGS (7)
  1. ALLOPURINOL. [Concomitant]
     Active Substance: ALLOPURINOL
  2. ELIQUIS [Suspect]
     Active Substance: APIXABAN
     Dosage: FILM-COATED TABLET
  3. RAMIPRIL. [Suspect]
     Active Substance: RAMIPRIL
  4. SOBRIL [Concomitant]
     Active Substance: OXAZEPAM
  5. ARTELAC [Concomitant]
  6. METOPROLOL [Concomitant]
     Active Substance: METOPROLOL
  7. MOVICOL [Concomitant]
     Active Substance: POLYETHYLENE GLYCOL 3350\POTASSIUM CHLORIDE\SODIUM BICARBONATE\SODIUM CHLORIDE

REACTIONS (1)
  - Blood creatine increased [Recovered/Resolved]

NARRATIVE: CASE EVENT DATE: 20140619
